FAERS Safety Report 14853975 (Version 2)
Quarter: 2018Q2

REPORT INFORMATION
  Report Type: Spontaneous
  Country: FR (occurrence: FR)
  Receive Date: 20180507
  Receipt Date: 20180531
  Transmission Date: 20180711
  Serious: Yes (Other)
  Sender: FDA-Public Use
  Company Number: FR-PFIZER INC-2018176465

PATIENT
  Age: 85 Year
  Sex: Male
  Weight: 73 kg

DRUGS (6)
  1. PYOSTACINE [Suspect]
     Active Substance: PRISTINAMYCIN
     Indication: PROSTATITIS ESCHERICHIA COLI
     Dosage: 3 G, 1X/DAY
     Route: 048
     Dates: start: 20180301, end: 20180305
  2. ROCEPHINE [Suspect]
     Active Substance: CEFTRIAXONE SODIUM
     Indication: PROSTATITIS ESCHERICHIA COLI
     Dosage: 1 G, EVERY HOUR
     Route: 042
     Dates: start: 20180305, end: 20180312
  3. TAZOCILLINE [Suspect]
     Active Substance: PIPERACILLIN SODIUM\TAZOBACTAM SODIUM
     Indication: PROSTATITIS ESCHERICHIA COLI
     Dosage: 12 G, 1X/DAY
     Route: 042
     Dates: start: 20180312, end: 20180316
  4. PARACETAMOL [Concomitant]
     Active Substance: ACETAMINOPHEN
     Dosage: UNK
  5. AUGMENTIN [Suspect]
     Active Substance: AMOXICILLIN\CLAVULANATE POTASSIUM
     Indication: PROSTATITIS ESCHERICHIA COLI
     Dosage: 3 G, 1X/DAY
     Route: 048
     Dates: start: 20180301, end: 20180301
  6. BACTRIM [Suspect]
     Active Substance: SULFAMETHOXAZOLE\TRIMETHOPRIM
     Indication: PROSTATITIS ESCHERICHIA COLI
     Dosage: 2 DF, 1X/DAY
     Route: 048
     Dates: start: 20180305, end: 20180316

REACTIONS (1)
  - Fixed eruption [Not Recovered/Not Resolved]

NARRATIVE: CASE EVENT DATE: 20180311
